FAERS Safety Report 6581509-1 (Version None)
Quarter: 2010Q1

REPORT INFORMATION
  Report Type: 
  Country: None (occurrence: None)
  Receive Date: 20100215
  Receipt Date: 20100208
  Transmission Date: 20100710
  Serious: Yes (Life-Threatening, Hospitalization)
  Sender: FDA-Public Use
  Company Number: B0633543A

PATIENT
  Sex: Female

DRUGS (3)
  1. AUGMENTIN '125' [Suspect]
     Dosage: 875MG TWICE PER DAY
     Route: 048
     Dates: start: 20100128, end: 20100201
  2. BROMHEXIN [Concomitant]
  3. MUCALTIN [Concomitant]

REACTIONS (3)
  - ALLERGIC OEDEMA [None]
  - DIZZINESS [None]
  - FALL [None]
